FAERS Safety Report 24219387 (Version 1)
Quarter: 2024Q3

REPORT INFORMATION
  Report Type: Report from Study
  Country: NL (occurrence: NL)
  Receive Date: 20240816
  Receipt Date: 20240816
  Transmission Date: 20241017
  Serious: Yes (Hospitalization, Other)
  Sender: ABBVIE
  Company Number: NL-ABBVIE-5842288

PATIENT
  Sex: Male

DRUGS (8)
  1. CARBIDOPA\LEVODOPA [Suspect]
     Active Substance: CARBIDOPA\LEVODOPA
     Indication: Parkinson^s disease
     Dosage: MD: 11.0ML, CD: 4.5ML/H, ED: 2.5ML, CND: 2.2ML/H?DURATION TEXT: REMAINS AT 24 HOURS
     Route: 050
     Dates: start: 20240212, end: 20240528
  2. CARBIDOPA\LEVODOPA [Suspect]
     Active Substance: CARBIDOPA\LEVODOPA
     Dosage: CD: 4.9ML/H, ED: 2.5ML?DURATION TEXT: REMAINS AT 24 HOURS
     Route: 050
     Dates: start: 20240528, end: 20240614
  3. CARBIDOPA\LEVODOPA [Suspect]
     Active Substance: CARBIDOPA\LEVODOPA
     Route: 050
     Dates: start: 20221121
  4. CARBIDOPA\LEVODOPA [Suspect]
     Active Substance: CARBIDOPA\LEVODOPA
     Dosage: MD: 11.0ML, CD: 5.1ML/H, ED: 2.5ML, CND: 2.4ML/H, END: 1.00 ML?DURATION TEXT: REMAINS AT 24 HOURS
     Route: 050
     Dates: start: 20240614
  5. OLANZAPINE [Concomitant]
     Active Substance: OLANZAPINE
     Indication: Hallucination
  6. POLYETHYLENE GLYCOLS [Concomitant]
     Active Substance: POLYETHYLENE GLYCOLS
     Indication: Abnormal faeces
  7. ROPINIROLE [Concomitant]
     Active Substance: ROPINIROLE
     Indication: Product used for unknown indication
  8. LEVODOPA [Concomitant]
     Active Substance: LEVODOPA
     Indication: Product used for unknown indication
     Route: 065

REACTIONS (7)
  - Hallucination [Not Recovered/Not Resolved]
  - Pyrexia [Not Recovered/Not Resolved]
  - Rehabilitation therapy [Recovered/Resolved]
  - Urosepsis [Not Recovered/Not Resolved]
  - Malaise [Recovered/Resolved]
  - Delirium [Not Recovered/Not Resolved]
  - Urinary tract infection [Unknown]

NARRATIVE: CASE EVENT DATE: 20240723
